FAERS Safety Report 9408886 (Version 1)
Quarter: 2013Q3

REPORT INFORMATION
  Report Type: Report from Study
  Country: CZ (occurrence: CZ)
  Receive Date: 20130719
  Receipt Date: 20130719
  Transmission Date: 20140515
  Serious: Yes (Hospitalization, Other)
  Sender: FDA-Public Use
  Company Number: CZ-PFIZER INC-2013210631

PATIENT
  Age: 45 Year
  Sex: Female

DRUGS (1)
  1. SUTENT [Suspect]

REACTIONS (4)
  - Sialoadenitis [Unknown]
  - Mucosal inflammation [Unknown]
  - Fatigue [Unknown]
  - Decreased appetite [Unknown]
